FAERS Safety Report 21326987 (Version 6)
Quarter: 2022Q4

REPORT INFORMATION
  Report Type: Spontaneous
  Country: US (occurrence: None)
  Receive Date: 20220913
  Receipt Date: 20221228
  Transmission Date: 20230112
  Serious: Yes (Hospitalization, Other)
  Sender: FDA-Public Use
  Company Number: US-Emmaus Medical, Inc.-EMM202208-000149

PATIENT
  Age: 12 Year
  Sex: Female
  Weight: 41.73 kg

DRUGS (8)
  1. ENDARI [Suspect]
     Active Substance: GLUTAMINE
     Indication: Sickle cell disease
     Dosage: 5 G
     Route: 048
     Dates: start: 201701
  2. ENDARI [Suspect]
     Active Substance: GLUTAMINE
     Indication: Haemochromatosis
     Dosage: 5 G
     Route: 048
     Dates: start: 20190104
  3. ENDARI [Suspect]
     Active Substance: GLUTAMINE
     Indication: Haemoglobinopathy
     Dosage: 5 G
     Route: 048
     Dates: start: 20220915
  4. ENDARI [Suspect]
     Active Substance: GLUTAMINE
     Dosage: 10 G
     Route: 048
     Dates: start: 202209
  5. ENDARI [Suspect]
     Active Substance: GLUTAMINE
     Dosage: 10 GM
     Route: 048
     Dates: start: 20220830
  6. ENDARI [Suspect]
     Active Substance: GLUTAMINE
     Dosage: 5 GM
     Route: 048
     Dates: start: 20220830
  7. FOLIC ACID [Concomitant]
     Active Substance: FOLIC ACID
     Indication: Product used for unknown indication
     Dosage: UNKNOWN
     Route: 065
  8. VITAMIN D NOS [Concomitant]
     Active Substance: VITAMIN D NOS
     Indication: Product used for unknown indication
     Dosage: UNKNOWN
     Route: 065

REACTIONS (4)
  - Splenectomy [Unknown]
  - Sickle cell anaemia with crisis [Recovered/Resolved]
  - Sickle cell anaemia with crisis [Recovered/Resolved]
  - Upper respiratory tract infection [Recovering/Resolving]

NARRATIVE: CASE EVENT DATE: 20220401
